FAERS Safety Report 7351764-9 (Version None)
Quarter: 2011Q1

REPORT INFORMATION
  Report Type: 
  Country: None (occurrence: None)
  Receive Date: 20110315
  Receipt Date: 20110303
  Transmission Date: 20110831
  Serious: Yes (Other)
  Sender: FDA-Public Use
  Company Number: BR-JNJFOC-20110302650

PATIENT
  Age: 53 Year
  Sex: Female

DRUGS (3)
  1. ANTI-HYPERTENSIVE [Concomitant]
  2. GLUCOPHAGE [Concomitant]
     Indication: DIABETES MELLITUS
  3. REMICADE [Suspect]
     Indication: RHEUMATOID ARTHRITIS
     Route: 042

REACTIONS (2)
  - PARAESTHESIA [None]
  - DYSPNOEA [None]
